FAERS Safety Report 8451802-6 (Version None)
Quarter: 2012Q2

REPORT INFORMATION
  Report Type: 
  Country: None (occurrence: None)
  Receive Date: 20120620
  Receipt Date: 20120606
  Transmission Date: 20120825
  Serious: Yes (Hospitalization, Other)
  Sender: FDA-Public Use
  Company Number: US-ROCHE-783950

PATIENT
  Sex: Male
  Weight: 68.1 kg

DRUGS (2)
  1. ACCUTANE [Suspect]
     Indication: ACNE
     Route: 065
     Dates: start: 19891201, end: 19900126
  2. ACCUTANE [Suspect]
     Dates: start: 19900129, end: 19900501

REACTIONS (13)
  - DEPRESSION [None]
  - ENTEROCOLONIC FISTULA [None]
  - PERIRECTAL ABSCESS [None]
  - RECTAL POLYP [None]
  - CROHN'S DISEASE [None]
  - SMALL INTESTINAL OBSTRUCTION [None]
  - INTESTINAL HAEMORRHAGE [None]
  - INFLAMMATORY BOWEL DISEASE [None]
  - STRESS [None]
  - SUICIDAL IDEATION [None]
  - BIPOLAR DISORDER [None]
  - HEADACHE [None]
  - IRRITABLE BOWEL SYNDROME [None]
